FAERS Safety Report 9929953 (Version 2)
Quarter: 2014Q1

REPORT INFORMATION
  Report Type: Spontaneous
  Country: US (occurrence: US)
  Receive Date: 20140227
  Receipt Date: 20140304
  Transmission Date: 20141002
  Serious: Yes (Other)
  Sender: FDA-Public Use
  Company Number: CHPA2014US003064

PATIENT
  Age: 55 Year
  Sex: Male

DRUGS (5)
  1. PREVACID 24HR 15MG [Suspect]
     Indication: DYSPEPSIA
     Dosage: UNK
     Route: 048
     Dates: start: 201308
  2. PREVACID 24HR 15MG [Suspect]
     Indication: OFF LABEL USE
  3. TUMS [Concomitant]
  4. ROLAIDS [Concomitant]
  5. ALKA-SELTZER                            /USA/ [Concomitant]

REACTIONS (1)
  - HIV test positive [Not Recovered/Not Resolved]
